FAERS Safety Report 4627952-9 (Version None)
Quarter: 2005Q2

REPORT INFORMATION
  Report Type: 
  Country: None (occurrence: None)
  Receive Date: 20050401
  Receipt Date: 20050321
  Transmission Date: 20051028
  Serious: Yes (Other)
  Sender: FDA-Public Use
  Company Number: 2005047251

PATIENT
  Sex: Female

DRUGS (1)
  1. SUDAFED 12 HOUR [Suspect]
     Indication: SINUS DISORDER
     Dosage: DAILY, ORAL
     Route: 048

REACTIONS (1)
  - SINUS OPERATION [None]
